FAERS Safety Report 5823564-X (Version None)
Quarter: 2008Q3

REPORT INFORMATION
  Report Type: 
  Country: None (occurrence: None)
  Receive Date: 20080725
  Receipt Date: 20080701
  Transmission Date: 20090109
  Serious: No
  Sender: FDA-Public Use
  Company Number: US-BOEHRINGER INGELHEIM GMBH, GERMANY-2008-BP-10405BP

PATIENT
  Sex: Female

DRUGS (5)
  1. MICARDIS [Suspect]
     Indication: HYPERTENSION
     Route: 048
  2. COREG CR [Suspect]
     Indication: HYPERTENSION
     Route: 048
     Dates: start: 20070601
  3. ASPIRIN [Suspect]
     Route: 048
  4. UNSPECIFIED THYROID MEDICATION [Concomitant]
     Indication: THYROID DISORDER
  5. MULTI-VITAMINS [Concomitant]

REACTIONS (8)
  - CONJUNCTIVITIS INFECTIVE [None]
  - DIZZINESS [None]
  - DYSPNOEA [None]
  - HYPOAESTHESIA [None]
  - LIP SWELLING [None]
  - OEDEMA PERIPHERAL [None]
  - URTICARIA [None]
  - WEIGHT INCREASED [None]
